FAERS Safety Report 5328650-9 (Version None)
Quarter: 2007Q2

REPORT INFORMATION
  Report Type: 
  Country: None (occurrence: None)
  Receive Date: 20070518
  Receipt Date: 20070504
  Transmission Date: 20071010
  Serious: Yes (Hospitalization)
  Sender: FDA-Public Use
  Company Number: US-ELI_LILLY_AND_COMPANY-US200705001707

PATIENT
  Age: 31 Year
  Sex: Male

DRUGS (1)
  1. FLUOXETINE HYDROCHLORIDE [Suspect]
     Route: 048

REACTIONS (3)
  - MULTIPLE DRUG OVERDOSE INTENTIONAL [None]
  - RHABDOMYOLYSIS [None]
  - SUICIDE ATTEMPT [None]
